FAERS Safety Report 11821461 (Version 4)
Quarter: 2018Q2

REPORT INFORMATION
  Report Type: Other
  Country: RU (occurrence: RU)
  Receive Date: 20151210
  Receipt Date: 20180601
  Transmission Date: 20180711
  Serious: Yes (Hospitalization, Other)
  Sender: FDA-Public Use
  Company Number: RU-MERCK KGAA-1045295

PATIENT
  Age: 15 Year
  Sex: Female
  Weight: 59 kg

DRUGS (11)
  1. THYROZOL [Suspect]
     Active Substance: METHIMAZOLE
  2. L-THYROXINE (LEVOTHYROXINE-SODIUM) [Suspect]
     Active Substance: LEVOTHYROXINE SODIUM
  3. NOVOTHYROX [Suspect]
     Active Substance: LEVOTHYROXINE SODIUM
     Indication: BASEDOW^S DISEASE
     Dates: start: 201404
  4. THYROZOL [Suspect]
     Active Substance: METHIMAZOLE
  5. THYROZOL [Suspect]
     Active Substance: METHIMAZOLE
  6. THYROZOL [Suspect]
     Active Substance: METHIMAZOLE
  7. THYROZOL [Suspect]
     Active Substance: METHIMAZOLE
  8. THYROZOL [Suspect]
     Active Substance: METHIMAZOLE
     Dates: start: 201404
  9. THYROZOL [Suspect]
     Active Substance: METHIMAZOLE
  10. THYROZOL [Suspect]
     Active Substance: METHIMAZOLE
  11. L-THYROXINE (LEVOTHYROXINE-SODIUM) [Suspect]
     Active Substance: LEVOTHYROXINE SODIUM

REACTIONS (17)
  - Hypothyroidism [Recovered/Resolved]
  - Pulmonary hypertension [None]
  - Tricuspid valve incompetence [None]
  - Cardiac murmur [None]
  - Choking [Recovered/Resolved]
  - Dilatation atrial [None]
  - Mitral valve incompetence [None]
  - Thyrotoxic cardiomyopathy [Recovered/Resolved]
  - Lacrimation increased [Recovered/Resolved]
  - Hyperthyroidism [Recovered/Resolved]
  - Feeling hot [None]
  - Mitral valve prolapse [None]
  - Disease recurrence [None]
  - Drug dose omission [None]
  - Basedow^s disease [None]
  - Tricuspid valve prolapse [None]
  - Drug ineffective [None]
